FAERS Safety Report 9051189 (Version 3)
Quarter: 2013Q2

REPORT INFORMATION
  Report Type: Spontaneous
  Country: US (occurrence: US)
  Receive Date: 20130206
  Receipt Date: 20130405
  Transmission Date: 20140414
  Serious: Yes (Other)
  Sender: FDA-Public Use
  Company Number: US-JNJFOC-20130117515

PATIENT
  Age: 17 Year
  Sex: Female
  Weight: 56.7 kg

DRUGS (2)
  1. LISTERINE TOTAL CARE PLUS WHITENING [Suspect]
     Indication: DENTAL CARE
     Dosage: CAPFUL
     Route: 048
     Dates: start: 20121223, end: 20130121
  2. PROBIOTIC [Concomitant]
     Indication: PRODUCT USED FOR UNKNOWN INDICATION
     Route: 065

REACTIONS (4)
  - Chemical injury [Recovered/Resolved]
  - Gingival bleeding [None]
  - Gingival discolouration [None]
  - Oral mucosal exfoliation [None]
